FAERS Safety Report 7415148-7 (Version None)
Quarter: 2011Q2

REPORT INFORMATION
  Report Type: 
  Country: None (occurrence: None)
  Receive Date: 20110414
  Receipt Date: 20110330
  Transmission Date: 20111010
  Serious: Yes (Other)
  Sender: FDA-Public Use
  Company Number: PHHY2011US06496

PATIENT
  Sex: Female

DRUGS (2)
  1. EXJADE [Suspect]
     Indication: LYMPHOPROLIFERATIVE DISORDER
     Dosage: 2000 MG, QD
     Route: 048
     Dates: start: 20101122, end: 20110216
  2. EXJADE [Suspect]
     Indication: IRON METABOLISM DISORDER

REACTIONS (5)
  - ABDOMINAL PAIN UPPER [None]
  - MALAISE [None]
  - HAEMATOCHEZIA [None]
  - ABDOMINAL DISCOMFORT [None]
  - NASOPHARYNGITIS [None]
